FAERS Safety Report 7570310-8 (Version None)
Quarter: 2011Q2

REPORT INFORMATION
  Report Type: 
  Country: None (occurrence: None)
  Receive Date: 20110624
  Receipt Date: 20110531
  Transmission Date: 20111010
  Serious: No
  Sender: FDA-Public Use
  Company Number: US-B.I. PHARMACEUTICALS,INC./RIDGEFIELD-2011-BP-11566BP

PATIENT
  Age: 71 Year
  Sex: Male
  Weight: 93.89 kg

DRUGS (16)
  1. LEVOTHYROXINE SODIUM [Concomitant]
     Indication: THYROID DISORDER
     Dosage: 0.75 MG
  2. CARVEDILOL [Concomitant]
     Indication: CARDIAC DISORDER
     Dosage: 12.5 MG
  3. AMIODARONE HCL [Concomitant]
     Dosage: 200 MG
     Dates: start: 20110424
  4. LOVAZA [Concomitant]
     Dosage: 1000 MG
  5. ASPIRIN [Concomitant]
     Indication: ANTICOAGULANT THERAPY
     Dosage: 81 MG
  6. C500 TIME RELEASE [Concomitant]
     Dosage: 500 MG
  7. CALCIUM WITH MAGNESIUM, VITAMIN D AND K [Concomitant]
  8. FUROSEMIDE [Concomitant]
     Indication: DIURETIC THERAPY
     Dosage: 20 MG
  9. PRILOSEC [Concomitant]
     Indication: DYSPEPSIA
     Dosage: 20 MG
  10. B50 [Concomitant]
  11. LISINOPRIL [Concomitant]
     Indication: BLOOD PRESSURE
     Dosage: 20 MG
  12. PRADAXA [Suspect]
     Indication: ATRIAL FIBRILLATION
     Dosage: 300 MG
     Route: 048
     Dates: start: 20110412
  13. AMIODARONE HCL [Concomitant]
     Dosage: 400 MG
     Dates: end: 20110424
  14. ALDACTONE [Concomitant]
     Indication: CARDIAC DISORDER
     Dosage: 25 MG
  15. ABC PLUS SENIOR MULTIVITAMIN AND MINERAL [Concomitant]
  16. CLA [Concomitant]
     Dosage: 1000 MG

REACTIONS (6)
  - GASTROINTESTINAL DISORDER [None]
  - DIARRHOEA [None]
  - MALAISE [None]
  - ABDOMINAL DISCOMFORT [None]
  - FATIGUE [None]
  - FLATULENCE [None]
